FAERS Safety Report 8584005-5 (Version None)
Quarter: 2012Q3

REPORT INFORMATION
  Report Type: 
  Country: None (occurrence: None)
  Receive Date: 20120810
  Receipt Date: 20120808
  Transmission Date: 20120928
  Serious: Yes (Other)
  Sender: FDA-Public Use
  Company Number: US-AMGEN-USASP2011019111

PATIENT
  Age: 39 Year
  Sex: Female

DRUGS (3)
  1. CORTICOSTEROIDS [Concomitant]
     Dosage: UNK
     Dates: start: 20100617
  2. NPLATE [Suspect]
     Indication: IDIOPATHIC THROMBOCYTOPENIC PURPURA
     Dosage: UNK
     Dates: start: 20100414
  3. IMMUNE GLOBULIN NOS [Concomitant]
     Dosage: UNK
     Dates: start: 20100622

REACTIONS (2)
  - DRUG INEFFECTIVE [None]
  - APLASTIC ANAEMIA [None]
